FAERS Safety Report 13142913 (Version 2)
Quarter: 2017Q1

REPORT INFORMATION
  Report Type: Spontaneous
  Country: US (occurrence: US)
  Receive Date: 20170124
  Receipt Date: 20170222
  Transmission Date: 20170428
  Serious: Yes (Hospitalization)
  Sender: FDA-Public Use
  Company Number: US-PFIZER INC-2017022874

PATIENT
  Age: 67 Year
  Sex: Female

DRUGS (1)
  1. VANCOMYCIN HCL [Suspect]
     Active Substance: VANCOMYCIN HYDROCHLORIDE
     Indication: CELLULITIS STAPHYLOCOCCAL
     Dosage: UNK
     Route: 042
     Dates: start: 20160524, end: 20160524

REACTIONS (3)
  - Red man syndrome [Unknown]
  - Drug hypersensitivity [Unknown]
  - Urticaria [Recovered/Resolved]

NARRATIVE: CASE EVENT DATE: 20160524
